FAERS Safety Report 9629487 (Version 3)
Quarter: 2013Q4

REPORT INFORMATION
  Report Type: Report from Study
  Country: GB (occurrence: GB)
  Receive Date: 20131017
  Receipt Date: 20131219
  Transmission Date: 20140711
  Serious: Yes (Hospitalization, Other)
  Sender: FDA-Public Use
  Company Number: GB-MERCK-1310GBR005749

PATIENT
  Age: 79 Year
  Sex: Male
  Weight: 63.9 kg

DRUGS (14)
  1. DEXAMETHASONE [Suspect]
     Indication: PLASMA CELL MYELOMA
     Dosage: 20 MG, ON DAYS 1, 2, 4, 5, 8, 9, 11, 12 EVERY 21 DAYS
     Route: 048
     Dates: start: 20130611, end: 20130824
  2. VELCADE [Suspect]
     Indication: PLASMA CELL MYELOMA
     Dosage: 0.7 MG/M2, ON DAYS 1, 4, 8, 11 EVERY 21 DAYS
     Route: 058
     Dates: start: 20130611, end: 20130823
  3. CITALOPRAM [Concomitant]
     Indication: DEPRESSION
     Dosage: UNK
     Dates: start: 20090303
  4. FINASTERIDE [Concomitant]
     Indication: PROSTATOMEGALY
     Dosage: UNK
     Dates: start: 199605
  5. NICORANDIL [Concomitant]
     Indication: ANGINA PECTORIS
     Dosage: UNK
     Dates: start: 1997
  6. OMEPRAZOLE [Concomitant]
     Indication: DYSPEPSIA
     Dosage: UNK
     Dates: start: 20100805
  7. CLODRONATE DISODIUM [Concomitant]
     Indication: PLASMA CELL MYELOMA
     Dosage: UNK
     Dates: start: 20110830
  8. WARFARIN SODIUM [Concomitant]
     Indication: ANTICOAGULATION DRUG LEVEL THERAPEUTIC
     Dosage: UNK
     Dates: start: 20041229, end: 20130812
  9. NITROGLYCERIN [Concomitant]
     Indication: ANGINA PECTORIS
     Dosage: UNK
     Dates: start: 1997
  10. ACYCLOVIR [Concomitant]
     Indication: ANTIVIRAL PROPHYLAXIS
     Dosage: UNK
     Dates: start: 20130611
  11. SULFAMETHOXAZOLE (+) TRIMETHOPRIM [Concomitant]
     Indication: ANTIFUNGAL PROPHYLAXIS
     Dosage: UNK
     Dates: start: 20130612
  12. LACRI LUBE (LANOLIN (+) MINERAL OIL (+) PETROLATUM, WHITE) [Concomitant]
     Indication: DRY EYE
     Dosage: UNK
     Dates: start: 20121221
  13. ASPIRIN [Concomitant]
     Dosage: UNK
  14. FLOXACILLIN [Concomitant]
     Dosage: UNK

REACTIONS (2)
  - Fall [Recovering/Resolving]
  - Humerus fracture [Recovering/Resolving]
